FAERS Safety Report 7620235-4 (Version None)
Quarter: 2011Q3

REPORT INFORMATION
  Report Type: 
  Country: None (occurrence: None)
  Receive Date: 20110719
  Receipt Date: 20110706
  Transmission Date: 20111222
  Serious: Yes (Other)
  Sender: FDA-Public Use
  Company Number: PHHY2011US60306

PATIENT
  Sex: Female

DRUGS (23)
  1. RECLAST [Suspect]
     Indication: OSTEOPOROSIS
     Dosage: 5 MG, (ONCE YEARLY)
     Route: 042
     Dates: start: 20110629
  2. WARFARIN SODIUM [Concomitant]
     Dosage: 2 MG, (2 OR 2.5)
  3. MULTIPLE VITAMINS [Concomitant]
     Dosage: UNK
  4. PREDNISOLONE 1% DROP [Concomitant]
     Dosage: UNK
  5. VOLTAREN 1%GEL [Concomitant]
  6. NEURO-PHOSPHATES [Concomitant]
     Dosage: 100 MG, (1 OR 2 DAILY)
  7. TRIAM [Concomitant]
  8. FEMARA [Concomitant]
     Dosage: 2.5 MG, QD
  9. RESTASIS DROPS [Concomitant]
  10. CALCIUM CARBONATE [Concomitant]
     Dosage: 600 MG, UNK
  11. LOVASTATIN [Concomitant]
     Dosage: 20 MG, QD
  12. XANAX [Concomitant]
     Dosage: 0.25 MG, UNK
  13. CARDIAZEM [Concomitant]
  14. CELEBREX [Concomitant]
     Dosage: 200 MG, QD
  15. GENTEAL [Concomitant]
  16. NEXIUM [Concomitant]
     Dosage: 40 MG, BID
  17. DESYREL [Concomitant]
     Dosage: 50 MG, UNK
  18. GLUCOSAMINE HYDROCHLORIDE [Concomitant]
     Dosage: 1500 MG, UNK
  19. SLO-MAG [Concomitant]
     Dosage: UNK
  20. XIBROM DROPS [Concomitant]
  21. METOPROLOL TARTRATE [Concomitant]
     Dosage: 25 MG, BID
  22. POTASSIUM CHLORIDE [Concomitant]
     Dosage: UNK
  23. LOVAZA [Concomitant]
     Dosage: 122 MG, UNK

REACTIONS (7)
  - MOVEMENT DISORDER [None]
  - PAIN [None]
  - ROAD TRAFFIC ACCIDENT [None]
  - PAIN IN EXTREMITY [None]
  - NAUSEA [None]
  - VOMITING [None]
  - HEADACHE [None]
